FAERS Safety Report 4944982-8 (Version None)
Quarter: 2006Q1

REPORT INFORMATION
  Report Type: 
  Country: None (occurrence: None)
  Receive Date: 20060117
  Receipt Date: 20050503
  Transmission Date: 20060701
  Serious: Yes (Disabling)
  Sender: FDA-Public Use
  Company Number: A03200501348

PATIENT
  Age: 49 Year
  Sex: Male
  Weight: 97.5234 kg

DRUGS (7)
  1. PLAVIX [Suspect]
     Indication: ANGIOPLASTY
     Dosage: 75 MG QD - ORAL
     Route: 048
     Dates: start: 20050421
  2. METFORMIN [Concomitant]
  3. GLIMEPIRIDE [Concomitant]
  4. VENLAFAXINE HCL [Concomitant]
  5. RAMIPRIL [Concomitant]
  6. ACETYLSALICYLIC ACID SRT [Concomitant]
  7. ATORVASTATIN CALCIUM [Concomitant]

REACTIONS (2)
  - PRURITUS GENERALISED [None]
  - URTICARIA [None]
